FAERS Safety Report 21254250 (Version 2)
Quarter: 2022Q3

REPORT INFORMATION
  Report Type: Spontaneous
  Country: JP (occurrence: JP)
  Receive Date: 20220825
  Receipt Date: 20220901
  Transmission Date: 20221027
  Serious: Yes (Other)
  Sender: FDA-Public Use
  Company Number: JP-NOVARTISPH-NVSC2022JP189376

PATIENT
  Age: 65 Year
  Sex: Male

DRUGS (2)
  1. ETOPOSIDE [Suspect]
     Active Substance: ETOPOSIDE
     Indication: Neuroendocrine carcinoma
     Dosage: UNK
     Route: 065
  2. CARBOPLATIN [Suspect]
     Active Substance: CARBOPLATIN
     Indication: Neuroendocrine carcinoma
     Dosage: UNK
     Route: 065

REACTIONS (4)
  - Metastases to central nervous system [Recovered/Resolved]
  - Neuroendocrine carcinoma [Recovered/Resolved]
  - Malignant neoplasm progression [Recovered/Resolved]
  - Product use in unapproved indication [Unknown]
